FAERS Safety Report 4482374-9 (Version None)
Quarter: 2004Q4

REPORT INFORMATION
  Report Type: 
  Country: None (occurrence: None)
  Receive Date: 20041022
  Receipt Date: 20030915
  Transmission Date: 20050328
  Serious: No
  Sender: FDA-Public Use
  Company Number: US-BRISTOL-MYERS SQUIBB COMPANY-12383402

PATIENT
  Sex: Female

DRUGS (4)
  1. BUSPAR [Suspect]
     Indication: DEPRESSION
     Dosage: USUALLY TAKES 1-5MG TABLET THREE TIMES DAILY,BUT SOMETIMES TAKES 3-5MG TABS AT ONE TIME
     Route: 048
  2. EFFEXOR [Concomitant]
  3. ONE-A-DAY [Concomitant]
  4. CALCIUM [Concomitant]

REACTIONS (1)
  - WEIGHT INCREASED [None]
